FAERS Safety Report 5638884-1 (Version None)
Quarter: 2008Q1

REPORT INFORMATION
  Report Type: 
  Country: None (occurrence: None)
  Receive Date: 20080225
  Receipt Date: 20080225
  Transmission Date: 20080703
  Serious: No
  Sender: FDA-Public Use
  Company Number: None

PATIENT
  Age: 30 Year
  Sex: Male
  Weight: 127.0072 kg

DRUGS (2)
  1. TOPAMAX [Suspect]
     Indication: HEADACHE
     Dosage: 25MG ONCE PO
     Route: 048
     Dates: start: 20080221, end: 20080222
  2. TOPAMAX [Suspect]
     Indication: NEURALGIA
     Dosage: 25MG ONCE PO
     Route: 048
     Dates: start: 20080221, end: 20080222

REACTIONS (4)
  - EYE DISCHARGE [None]
  - EYE PAIN [None]
  - MYOPIA [None]
  - VISION BLURRED [None]
